FAERS Safety Report 18469713 (Version 3)
Quarter: 2020Q4

REPORT INFORMATION
  Report Type: Spontaneous
  Country: US (occurrence: US)
  Receive Date: 20201105
  Receipt Date: 20201111
  Transmission Date: 20210114
  Serious: Yes (Other)
  Sender: FDA-Public Use
  Company Number: US-ALLERGAN-2042924US

PATIENT
  Sex: Female

DRUGS (1)
  1. LATISSE [Suspect]
     Active Substance: BIMATOPROST
     Indication: PRODUCT USED FOR UNKNOWN INDICATION

REACTIONS (7)
  - Autoimmune disorder [Unknown]
  - Diplopia [Unknown]
  - Visual impairment [Not Recovered/Not Resolved]
  - Sjogren^s syndrome [Unknown]
  - Dry eye [Unknown]
  - Autoimmune thyroiditis [Unknown]
  - Cataract [Unknown]
